FAERS Safety Report 4918926-9 (Version None)
Quarter: 2006Q1

REPORT INFORMATION
  Report Type: 
  Country: None (occurrence: None)
  Receive Date: 20060221
  Receipt Date: 20060221
  Transmission Date: 20060701
  Serious: Yes (Hospitalization)
  Sender: FDA-Public Use
  Company Number: None

PATIENT
  Sex: Male
  Weight: 83.4619 kg

DRUGS (14)
  1. TAXOTERE [Suspect]
     Indication: PROSTATE CANCER
     Dosage: 100MG  Q3W   IV
     Route: 042
     Dates: start: 20051005
  2. DECADRON SRC [Suspect]
     Indication: PROSTATE CANCER
     Dosage: 10MG  Q3W  IV
     Route: 042
     Dates: start: 20051005
  3. ZOFRAN [Concomitant]
  4. NEUPOGEN [Concomitant]
  5. ASPIRIN [Concomitant]
  6. ARANESP [Concomitant]
  7. PNEUMOVAX 23 [Concomitant]
  8. FLU SHOT [Concomitant]
  9. NEULASTA [Concomitant]
  10. AMARYL [Concomitant]
  11. FLOMAX [Concomitant]
  12. LEVAQUIN [Concomitant]
  13. LISINOPRIL [Concomitant]
  14. ALDACTONE [Concomitant]

REACTIONS (12)
  - CATHETER RELATED INFECTION [None]
  - DELIRIUM [None]
  - DEMENTIA [None]
  - HEMIPARESIS [None]
  - HYPOGLYCAEMIA [None]
  - MENTAL STATUS CHANGES [None]
  - NOSOCOMIAL INFECTION [None]
  - OBSTRUCTIVE UROPATHY [None]
  - PROTEUS INFECTION [None]
  - RESTLESSNESS [None]
  - SCREAMING [None]
  - URINARY TRACT INFECTION [None]
